FAERS Safety Report 8517319-5 (Version None)
Quarter: 2012Q3

REPORT INFORMATION
  Report Type: 
  Country: None (occurrence: None)
  Receive Date: 20120718
  Receipt Date: 20120713
  Transmission Date: 20120928
  Serious: Yes (Death, Other)
  Sender: FDA-Public Use
  Company Number: BR-PFIZER INC-2012151853

PATIENT
  Age: 63 Year
  Sex: Male

DRUGS (1)
  1. SUTENT [Suspect]
     Indication: RENAL CANCER
     Dosage: 50 MG, 1X/DAY
     Route: 048
     Dates: start: 20120123

REACTIONS (8)
  - CONVULSION [None]
  - DEATH [None]
  - COMA [None]
  - ASTHENIA [None]
  - VOMITING [None]
  - PAIN [None]
  - DISEASE PROGRESSION [None]
  - RENAL CANCER [None]
